FAERS Safety Report 7691039-1 (Version None)
Quarter: 2011Q3

REPORT INFORMATION
  Report Type: 
  Country: None (occurrence: None)
  Receive Date: 20110818
  Receipt Date: 20110809
  Transmission Date: 20111222
  Serious: Yes (Other)
  Sender: FDA-Public Use
  Company Number: IE-US-EMD SERONO, INC.-7076333

PATIENT
  Sex: Female

DRUGS (5)
  1. TOLTERODINE TARTRATE [Concomitant]
     Indication: URINARY RETENTION
  2. DIOVAN [Concomitant]
     Indication: BLOOD PRESSURE
  3. FOLIC ACID [Concomitant]
     Indication: DRUG THERAPY
  4. REBIF [Suspect]
     Indication: RELAPSING-REMITTING MULTIPLE SCLEROSIS
     Route: 058
     Dates: start: 19980101
  5. TOLTERODINE TARTRATE [Concomitant]
     Indication: URINARY TRACT INFECTION

REACTIONS (2)
  - CONVULSION [None]
  - TRIGEMINAL NEURALGIA [None]
